FAERS Safety Report 6253434-7 (Version None)
Quarter: 2009Q3

REPORT INFORMATION
  Report Type: 
  Country: None (occurrence: None)
  Receive Date: 20090701
  Receipt Date: 20090623
  Transmission Date: 20100115
  Serious: Yes (Hospitalization)
  Sender: FDA-Public Use
  Company Number: US-SANOFI-SYNTHELABO-A03200902348

PATIENT
  Sex: Male

DRUGS (1)
  1. AMBIEN [Suspect]
     Indication: SLEEP DISORDER
     Route: 048
     Dates: start: 19950101

REACTIONS (6)
  - DRUG ABUSE [None]
  - DRUG DEPENDENCE [None]
  - HALLUCINATION [None]
  - IMPAIRED DRIVING ABILITY [None]
  - SHOPLIFTING [None]
  - WITHDRAWAL SYNDROME [None]
